FAERS Safety Report 8293636-1 (Version None)
Quarter: 2012Q2

REPORT INFORMATION
  Report Type: 
  Country: None (occurrence: None)
  Receive Date: 20120418
  Receipt Date: 20120409
  Transmission Date: 20120825
  Serious: No
  Sender: FDA-Public Use
  Company Number: US-BIOGENIDEC-2012BI012576

PATIENT
  Sex: Female

DRUGS (2)
  1. TYSABRI [Suspect]
     Route: 042
     Dates: start: 20090812, end: 20100108
  2. TYSABRI [Suspect]
     Indication: MULTIPLE SCLEROSIS
     Route: 042
     Dates: start: 20080613, end: 20090318

REACTIONS (5)
  - MEMORY IMPAIRMENT [None]
  - ARTHRALGIA [None]
  - OSTEOPOROSIS [None]
  - OSTEONECROSIS [None]
  - SKIN INFECTION [None]
